FAERS Safety Report 4437735-0 (Version None)
Quarter: 2004Q3

REPORT INFORMATION
  Report Type: 
  Country: None (occurrence: None)
  Receive Date: 20040728
  Receipt Date: 20040318
  Transmission Date: 20050211
  Serious: No
  Sender: FDA-Public Use
  Company Number: USA040362507

PATIENT
  Sex: Male

DRUGS (2)
  1. STRATTERA [Suspect]
     Dosage: 40 MG DAY
  2. MOTRIN [Concomitant]

REACTIONS (4)
  - BACTERIURIA [None]
  - DYSURIA [None]
  - POLLAKIURIA [None]
  - URINARY HESITATION [None]
